FAERS Safety Report 15094224 (Version 1)
Quarter: 2018Q2

REPORT INFORMATION
  Report Type: Spontaneous
  Country: IT (occurrence: IT)
  Receive Date: 20180630
  Receipt Date: 20180630
  Transmission Date: 20180711
  Serious: Yes (Hospitalization)
  Sender: FDA-Public Use
  Company Number: IT-TEVA-2018-IT-916898

PATIENT
  Age: 84 Year
  Sex: Male

DRUGS (6)
  1. RAMIPRIL. [Suspect]
     Active Substance: RAMIPRIL
     Indication: HYPERTENSION
     Dosage: 1 DOSAGE FORMS DAILY;
     Route: 048
     Dates: start: 20170101, end: 20170825
  2. ATEM [Concomitant]
     Active Substance: IPRATROPIUM BROMIDE
     Route: 055
  3. LANSOPRAZOLO  TEVA [Concomitant]
     Route: 048
  4. CLENILEXX [Concomitant]
     Route: 055
  5. SIMVASTATIN. [Concomitant]
     Active Substance: SIMVASTATIN
     Route: 055
  6. TICLOPIDINE [Concomitant]
     Active Substance: TICLOPIDINE
     Route: 048

REACTIONS (2)
  - Sopor [Unknown]
  - Hyperkalaemia [Unknown]

NARRATIVE: CASE EVENT DATE: 20170825
